FAERS Safety Report 7545498-5 (Version None)
Quarter: 2011Q2

REPORT INFORMATION
  Report Type: 
  Country: None (occurrence: None)
  Receive Date: 20110525
  Receipt Date: 20110215
  Transmission Date: 20111010
  Serious: No
  Sender: FDA-Public Use
  Company Number: 323563

PATIENT
  Age: 60 Year
  Sex: Male

DRUGS (2)
  1. LEVEMIR [Concomitant]
  2. VICTOZA [Suspect]
     Indication: TYPE 2 DIABETES MELLITUS
     Dosage: 1.2 MG, QD, SUBCUTANEOUS
     Route: 058

REACTIONS (4)
  - CONSTIPATION [None]
  - ABDOMINAL PAIN LOWER [None]
  - FLATULENCE [None]
  - DECREASED APPETITE [None]
